FAERS Safety Report 9322864 (Version 1)
Quarter: 2013Q2

REPORT INFORMATION
  Report Type: Spontaneous
  Country: NZ (occurrence: NZ)
  Receive Date: 20130602
  Receipt Date: 20130602
  Transmission Date: 20140414
  Serious: Yes (Life-Threatening, Other)
  Sender: FDA-Public Use
  Company Number: NZ-ASTRAZENECA-2011SE22201

PATIENT
  Age: 16 Year
  Sex: Female

DRUGS (1)
  1. QUETIAPINE [Suspect]
     Indication: BIPOLAR DISORDER
     Dosage: 11400 MG (300 MG X 38)
     Route: 048

REACTIONS (5)
  - Overdose [Recovered/Resolved]
  - Electrocardiogram QT prolonged [Recovered/Resolved]
  - Stupor [Unknown]
  - Mental impairment [Recovered/Resolved]
  - Hypotension [Recovered/Resolved]
